FAERS Safety Report 22532581 (Version 1)
Quarter: 2023Q2

REPORT INFORMATION
  Report Type: Spontaneous
  Country: IT (occurrence: IT)
  Receive Date: 20230607
  Receipt Date: 20230607
  Transmission Date: 20230722
  Serious: Yes (Other)
  Sender: FDA-Public Use
  Company Number: None

PATIENT
  Age: 41 Year
  Sex: Male
  Weight: 76 kg

DRUGS (1)
  1. HYRIMOZ [Suspect]
     Active Substance: ADALIMUMAB-ADAZ
     Indication: Spondylitis
     Dosage: 40 MG, (INTERVAL OF 15 DAY)
     Route: 058
     Dates: start: 20210501, end: 20230427

REACTIONS (3)
  - Pruritus [Recovered/Resolved with Sequelae]
  - Multiple injuries [Recovered/Resolved with Sequelae]
  - Cutaneous vasculitis [Recovered/Resolved with Sequelae]

NARRATIVE: CASE EVENT DATE: 20210501
